FAERS Safety Report 5258495-X (Version None)
Quarter: 2007Q1

REPORT INFORMATION
  Report Type: 
  Country: None (occurrence: None)
  Receive Date: 20070308
  Receipt Date: 20070227
  Transmission Date: 20070707
  Serious: Yes (Hospitalization)
  Sender: FDA-Public Use
  Company Number: FR-JNJFOC-20070300041

PATIENT
  Age: 66 Year
  Sex: Female

DRUGS (2)
  1. GYNO-PEVARYL [Suspect]
     Indication: PRURITUS
     Route: 067
  2. ZOLOFT [Concomitant]
     Route: 065

REACTIONS (1)
  - TOXIC SKIN ERUPTION [None]
